FAERS Safety Report 22249338 (Version 2)
Quarter: 2023Q2

REPORT INFORMATION
  Report Type: Spontaneous
  Country: None (occurrence: NO)
  Receive Date: 20230425
  Receipt Date: 20230524
  Transmission Date: 20230722
  Serious: Yes (Other)
  Sender: FDA-Public Use
  Company Number: NO-Therakind Limited-2140757

PATIENT
  Age: 69 Year
  Sex: Male

DRUGS (13)
  1. METHOTREXATE [Suspect]
     Active Substance: METHOTREXATE
     Indication: Burkitt^s lymphoma
  2. VINDESINE [Suspect]
     Active Substance: VINDESINE
  3. CYCLOPHOSPHAMIDE [Suspect]
     Active Substance: CYCLOPHOSPHAMIDE
  4. DEXAMETHASONE [Suspect]
     Active Substance: DEXAMETHASONE
  5. CYTARABINE [Suspect]
     Active Substance: CYTARABINE
  6. IFOSFAMIDE [Suspect]
     Active Substance: IFOSFAMIDE
  7. VINCRISTINE [Suspect]
     Active Substance: VINCRISTINE
  8. DOXORUBICIN [Suspect]
     Active Substance: DOXORUBICIN
  9. CISPLATIN [Suspect]
     Active Substance: CISPLATIN
  10. RITUXIMAB [Suspect]
     Active Substance: RITUXIMAB
  11. ETOPOSIDE [Suspect]
     Active Substance: ETOPOSIDE
  12. OBINUTUZUMAB [Suspect]
     Active Substance: OBINUTUZUMAB
  13. CARBOPLATIN [Suspect]
     Active Substance: CARBOPLATIN
     Dates: start: 20230118, end: 20230324

REACTIONS (5)
  - Ill-defined disorder [Unknown]
  - Blood lactate dehydrogenase increased [Unknown]
  - Gastrointestinal disorder [Unknown]
  - Product use in unapproved indication [Unknown]
  - Off label use [Unknown]
